FAERS Safety Report 10958492 (Version 2)
Quarter: 2015Q2

REPORT INFORMATION
  Report Type: Report from Study
  Country: CA (occurrence: CA)
  Receive Date: 20150326
  Receipt Date: 20150505
  Transmission Date: 20150821
  Serious: Yes (Other)
  Sender: FDA-Public Use
  Company Number: CA-ABBVIE-15P-028-1366315-00

PATIENT
  Age: 51 Year
  Sex: Female
  Weight: 45.4 kg

DRUGS (1)
  1. HUMIRA [Suspect]
     Active Substance: ADALIMUMAB
     Indication: CROHN^S DISEASE
     Route: 058
     Dates: start: 20141223, end: 20150203

REACTIONS (8)
  - Butterfly rash [Unknown]
  - Rash papular [Recovered/Resolved]
  - Crohn^s disease [Recovered/Resolved]
  - Lupus-like syndrome [Unknown]
  - Pain [Recovered/Resolved]
  - Bone pain [Unknown]
  - White blood cell count increased [Unknown]
  - Crohn^s disease [Recovering/Resolving]

NARRATIVE: CASE EVENT DATE: 20150205
